FAERS Safety Report 18236574 (Version 2)
Quarter: 2020Q3

REPORT INFORMATION
  Report Type: Spontaneous
  Country: JP (occurrence: JP)
  Receive Date: 20200907
  Receipt Date: 20200921
  Transmission Date: 20201103
  Serious: Yes (Hospitalization)
  Sender: FDA-Public Use
  Company Number: JP-SA-2020SA238151

PATIENT

DRUGS (2)
  1. OXALIPLATIN. [Suspect]
     Active Substance: OXALIPLATIN
     Indication: COLON CANCER STAGE III
     Dosage: UNK UNK, Q3W
  2. TEGAFUR GIMERACIL AND OTERACIL POTASSIUM [Concomitant]
     Active Substance: GIMERACIL\OTERACIL\TEGAFUR
     Indication: COLON CANCER STAGE III
     Dosage: UNK

REACTIONS (5)
  - Splenomegaly [Unknown]
  - Venous thrombosis [Unknown]
  - Venoocclusive liver disease [Unknown]
  - Varices oesophageal [Unknown]
  - Platelet count decreased [Unknown]
